FAERS Safety Report 23390715 (Version 1)
Quarter: 2024Q1

REPORT INFORMATION
  Report Type: Spontaneous
  Country: IQ (occurrence: None)
  Receive Date: 20240111
  Receipt Date: 20240111
  Transmission Date: 20240410
  Serious: Yes (Death, Hospitalization)
  Sender: FDA-Public Use
  Company Number: IQ-ROCHE-3485808

PATIENT
  Age: 0 Year
  Sex: Female
  Weight: 10 kg

DRUGS (1)
  1. RISDIPLAM [Suspect]
     Active Substance: RISDIPLAM
     Indication: Spinal muscular atrophy
     Dosage: 2.7 ML
     Route: 048
     Dates: start: 20230730, end: 20231115

REACTIONS (2)
  - Spinal muscular atrophy [Fatal]
  - Pneumonia [Unknown]

NARRATIVE: CASE EVENT DATE: 20231115
